FAERS Safety Report 8479067-X (Version None)
Quarter: 2012Q2

REPORT INFORMATION
  Report Type: 
  Country: None (occurrence: None)
  Receive Date: 20120629
  Receipt Date: 20120621
  Transmission Date: 20120825
  Serious: Yes (Other)
  Sender: FDA-Public Use
  Company Number: CA-JNJFOC-20120611308

PATIENT
  Sex: Female
  Weight: 68 kg

DRUGS (15)
  1. ESTRACE [Concomitant]
     Route: 065
  2. REMICADE [Suspect]
     Indication: RHEUMATOID ARTHRITIS
     Route: 042
  3. PERMETHRIN [Concomitant]
     Route: 065
  4. IMURAN [Concomitant]
     Route: 065
  5. ACETYLSALICYLIC ACID SRT [Concomitant]
     Route: 065
  6. APPLE CIDER VINEGAR (DIETARY SUPPLEMENT) [Concomitant]
     Route: 065
  7. VITAMIN D [Concomitant]
     Route: 065
  8. VIMOVO [Concomitant]
     Route: 065
  9. ACTONEL [Concomitant]
     Route: 065
  10. VITAMIN A [Concomitant]
     Route: 065
  11. GLUCOSAMINE [Concomitant]
     Route: 065
  12. CALCIUM [Concomitant]
     Route: 065
  13. FOLIC ACID [Concomitant]
     Route: 065
  14. ALL OTHER THERAPEUTICS [Concomitant]
     Route: 065
  15. CHONDROITIN [Concomitant]
     Route: 065

REACTIONS (1)
  - BASAL CELL CARCINOMA [None]
